FAERS Safety Report 24591497 (Version 7)
Quarter: 2025Q4

REPORT INFORMATION
  Report Type: Spontaneous
  Country: EU (occurrence: EU)
  Receive Date: 20241108
  Receipt Date: 20251010
  Transmission Date: 20260118
  Serious: Yes (Other)
  Sender: AUROBINDO
  Company Number: EU-ELI_LILLY_AND_COMPANY-ES202409006857

PATIENT
  Age: 52 Year
  Sex: Female

DRUGS (13)
  1. LETROZOLE [Suspect]
     Active Substance: LETROZOLE
     Indication: Breast cancer
     Dosage: UNK UNK, UNKNOWN
     Route: 065
  2. MAGNESIUM [Suspect]
     Active Substance: MAGNESIUM
     Indication: Product used for unknown indication
     Dosage: UNK UNK, DAILY AT NIGHT
     Route: 065
  3. ABEMACICLIB [Suspect]
     Active Substance: ABEMACICLIB
     Indication: Breast cancer
     Dosage: 300 MILLIGRAM, ONCE A DAY
     Route: 048
     Dates: start: 20240903
  4. ABEMACICLIB [Suspect]
     Active Substance: ABEMACICLIB
     Dosage: 300 MILLIGRAM, ONCE A DAY
     Route: 048
  5. ABEMACICLIB [Suspect]
     Active Substance: ABEMACICLIB
     Dosage: 100 MILLIGRAM
     Route: 065
     Dates: start: 20241203
  6. MANIDIPINE HYDROCHLORIDE [Concomitant]
     Active Substance: MANIDIPINE HYDROCHLORIDE
     Indication: Blood pressure abnormal
     Dosage: 10 MILLIGRAM, ONCE A DAY, DAILY AT NIGHT
     Route: 065
  7. MANIDIPINE HYDROCHLORIDE [Concomitant]
     Active Substance: MANIDIPINE HYDROCHLORIDE
     Dosage: 10 MILLIGRAM, OTHER (HALF A 10 MG)
     Route: 065
  8. Omega 7 [Concomitant]
     Indication: Product used for unknown indication
     Dosage: UNK UNK, DAILY IN THE MORNING
     Route: 065
  9. LORAZEPAM [Concomitant]
     Active Substance: LORAZEPAM
     Indication: Product used for unknown indication
     Dosage: UNK UNK, DAILY AT NIGHT
     Route: 065
  10. RAMIPRIL [Concomitant]
     Active Substance: RAMIPRIL
     Indication: Blood pressure abnormal
     Dosage: 10 MG, DAILY IN THE MORNING
     Route: 065
  11. RAMIPRIL [Concomitant]
     Active Substance: RAMIPRIL
     Dosage: 10 MG, HALF TABLET IN THE MORNING
     Route: 065
     Dates: start: 20240909
  12. TAMOXIFEN [Concomitant]
     Active Substance: TAMOXIFEN
     Indication: Breast cancer
     Dosage: UNK
     Route: 065
     Dates: start: 202410
  13. HERBALS\TURMERIC [Concomitant]
     Active Substance: HERBALS\TURMERIC
     Indication: Product used for unknown indication
     Dosage: UNK
     Route: 065
     Dates: start: 20241130

REACTIONS (48)
  - Rectal haemorrhage [Recovering/Resolving]
  - Stress [Unknown]
  - Fear [Recovering/Resolving]
  - Fear of eating [Unknown]
  - Mucosal disorder [Recovering/Resolving]
  - Malaise [Recovering/Resolving]
  - Abdominal pain [Recovered/Resolved]
  - Dehydration [Recovering/Resolving]
  - Flatulence [Recovering/Resolving]
  - Abdominal pain upper [Recovered/Resolved]
  - Eructation [Recovered/Resolved]
  - Hunger [Recovering/Resolving]
  - Taste disorder [Recovered/Resolved]
  - Social fear [Unknown]
  - Faeces hard [Recovered/Resolved]
  - Hypotension [Recovered/Resolved]
  - Pain [Recovering/Resolving]
  - Oesophageal pain [Recovering/Resolving]
  - Constipation [Recovering/Resolving]
  - Gastrointestinal motility disorder [Recovering/Resolving]
  - Musculoskeletal discomfort [Recovering/Resolving]
  - Bone pain [Recovered/Resolved]
  - Arthralgia [Recovered/Resolved]
  - Breast pain [Recovering/Resolving]
  - Breast swelling [Recovering/Resolving]
  - Sleep disorder [Recovering/Resolving]
  - Dizziness [Recovering/Resolving]
  - Diarrhoea [Recovered/Resolved]
  - Nausea [Recovered/Resolved]
  - Neutrophil count decreased [Recovering/Resolving]
  - Headache [Recovering/Resolving]
  - Decreased appetite [Recovering/Resolving]
  - Blood test abnormal [Recovering/Resolving]
  - Hair growth abnormal [Recovering/Resolving]
  - Chills [Recovering/Resolving]
  - Rash [Recovering/Resolving]
  - Intestinal barrier dysfunction [Recovering/Resolving]
  - Gastrointestinal pain [Recovering/Resolving]
  - Fluid retention [Recovering/Resolving]
  - Abdominal discomfort [Recovering/Resolving]
  - Fatigue [Recovered/Resolved]
  - Asthenia [Recovering/Resolving]
  - Renal disorder [Recovering/Resolving]
  - Thinking abnormal [Recovering/Resolving]
  - Back pain [Recovering/Resolving]
  - Visual impairment [Recovering/Resolving]
  - Hair texture abnormal [Recovering/Resolving]
  - Brain fog [Recovering/Resolving]

NARRATIVE: CASE EVENT DATE: 20240906
